FAERS Safety Report 7766245-8 (Version None)
Quarter: 2011Q3

REPORT INFORMATION
  Report Type: 
  Country: None (occurrence: None)
  Receive Date: 20110921
  Receipt Date: 20110915
  Transmission Date: 20111222
  Serious: Yes (Death, Hospitalization)
  Sender: FDA-Public Use
  Company Number: US-BRISTOL-MYERS SQUIBB COMPANY-13275334

PATIENT
  Age: 74 Year
  Sex: Male
  Weight: 69 kg

DRUGS (21)
  1. LUNESTA [Concomitant]
     Indication: INSOMNIA
     Route: 048
     Dates: start: 20050901
  2. AMARYL [Concomitant]
     Indication: HYPERGLYCAEMIA
     Route: 048
     Dates: start: 20051226
  3. DEXONE [Concomitant]
     Indication: PREMEDICATION
     Dosage: 4MG PO BID.20DEC05-UNK.
     Route: 042
     Dates: start: 20051221, end: 20051221
  4. ZOFRAN [Concomitant]
     Route: 048
  5. CETUXIMAB [Suspect]
     Indication: NON-SMALL CELL LUNG CANCER
     Dosage: INITIATED 21-DEC-05(400 MG/M2)4TH,RECENT INF:17JAN06 692MG:21-21DEC2005
     Route: 042
     Dates: start: 20051221, end: 20060117
  6. ZOLOFT [Concomitant]
     Indication: DEPRESSION
     Route: 048
     Dates: start: 20051101
  7. AZITHROMYCIN [Concomitant]
     Indication: INFECTION
     Route: 048
     Dates: start: 20051215
  8. ROCEPHIN [Concomitant]
     Indication: INFECTION
     Route: 042
     Dates: start: 20051214, end: 20051220
  9. AVELOX [Concomitant]
     Indication: PNEUMONIA
     Route: 048
     Dates: start: 20051230, end: 20060105
  10. NORVASC [Concomitant]
     Indication: HYPERTENSION
     Route: 048
     Dates: end: 20051223
  11. MEGACE [Concomitant]
     Indication: DECREASED APPETITE
     Route: 048
     Dates: start: 20050901, end: 20051230
  12. CARDIZEM [Concomitant]
     Indication: HYPERTENSION
     Route: 048
     Dates: start: 20051223
  13. TESSALON [Concomitant]
     Route: 048
  14. FOLIC ACID [Concomitant]
     Route: 048
     Dates: start: 20051215
  15. DILTIAZEM CD [Concomitant]
     Indication: HYPERTENSION
     Route: 048
     Dates: start: 20051223
  16. ALIMTA [Suspect]
     Indication: NON-SMALL CELL LUNG CANCER
     Dosage: INITIATED 21-DEC-05.865MG:21-21DEC2005
     Route: 042
     Dates: start: 20051221, end: 20060110
  17. OXYCODONE HCL [Concomitant]
     Indication: PAIN
     Dosage: Q6H.OXYIR SG
     Route: 048
     Dates: start: 20051213
  18. MULTI-VITAMIN [Concomitant]
     Dosage: 1 DF = 1 UNITS NOS
     Route: 048
     Dates: start: 19900101
  19. DEXONE [Concomitant]
     Route: 042
     Dates: start: 20051220
  20. GLIMEPIRIDE [Concomitant]
  21. CARDIZEM [Concomitant]
     Route: 048
     Dates: start: 20051223

REACTIONS (3)
  - ABDOMINAL PAIN [None]
  - PNEUMONIA [None]
  - CEREBRAL INFARCTION [None]
